FAERS Safety Report 18806379 (Version 1)
Quarter: 2021Q1

REPORT INFORMATION
  Report Type: Spontaneous
  Country: US (occurrence: US)
  Receive Date: 20210128
  Receipt Date: 20210128
  Transmission Date: 20210419
  Serious: No
  Sender: FDA-Public Use
  Company Number: None

PATIENT
  Age: 71 Year
  Sex: Male
  Weight: 96 kg

DRUGS (2)
  1. LISINOPRIL (LISINOPRIL 20MG TAB) [Suspect]
     Active Substance: LISINOPRIL
     Indication: HYPERTENSION
     Route: 048
     Dates: start: 20160620, end: 20190219
  2. NAPROXEN (NAPROXEN 250MG TAB) [Suspect]
     Active Substance: NAPROXEN
     Indication: PAIN
     Route: 048
     Dates: start: 20150608, end: 20190219

REACTIONS (4)
  - Rash [None]
  - Peripheral swelling [None]
  - Urticaria [None]
  - Angioedema [None]

NARRATIVE: CASE EVENT DATE: 20190219
